FAERS Safety Report 4524775-6 (Version None)
Quarter: 2004Q4

REPORT INFORMATION
  Report Type: 
  Country: None (occurrence: None)
  Receive Date: 20041208
  Receipt Date: 20041130
  Transmission Date: 20050328
  Serious: Yes (Hospitalization)
  Sender: FDA-Public Use
  Company Number: FRWYE243430NOV04

PATIENT
  Age: 52 Year
  Sex: Male

DRUGS (8)
  1. TAZOCILLINE (PIPERACILLIN/TAZOBACTAM, INJECTION) [Suspect]
     Indication: BRONCHOPNEUMONIA
     Dosage: 4.5 G X 2X PER 1 DAY, INTRAVENOUS
     Route: 042
     Dates: start: 20040930, end: 20041014
  2. ZYVOX (LINEZOLID, 0) [Suspect]
     Indication: BRONCHOPNEUMONIA
     Dosage: 600 MG 2X PER 1 DAY, INTRAVENOUS
     Route: 042
     Dates: start: 20040930, end: 20041014
  3. SPASFON (PHLOROGLUCINOL/TRIMETHYLPHLOROGLUCINOL) [Concomitant]
  4. PHYTONADIONE [Concomitant]
  5. OMEPRAZOLE [Concomitant]
  6. URSOLVAN-200 (URSODEOXYCHOLIC ACID) [Concomitant]
  7. ACETAMINOPHEN [Concomitant]
  8. VITAMIN B (VITAMIN B) [Concomitant]

REACTIONS (3)
  - ANURIA [None]
  - DIALYSIS [None]
  - RENAL FAILURE ACUTE [None]
